FAERS Safety Report 4437670-8 (Version None)
Quarter: 2004Q3

REPORT INFORMATION
  Report Type: 
  Country: None (occurrence: None)
  Receive Date: 20040831
  Receipt Date: 20020419
  Transmission Date: 20050211
  Serious: Yes (Other)
  Sender: FDA-Public Use
  Company Number: 200213965US

PATIENT
  Sex: Female

DRUGS (7)
  1. ARAVA [Suspect]
     Indication: RHEUMATOID ARTHRITIS
     Route: 048
     Dates: start: 20020201, end: 20020606
  2. ENBREL [Concomitant]
     Indication: RHEUMATOID ARTHRITIS
     Dosage: DOSE: UNK
     Dates: end: 20020407
  3. MOBIC [Concomitant]
     Indication: RHEUMATOID ARTHRITIS
     Dosage: DOSE: UNK
     Dates: end: 20020411
  4. PREDNISONE [Concomitant]
     Indication: RHEUMATOID ARTHRITIS
     Route: 048
  5. NEURONTIN [Concomitant]
     Indication: TRIGEMINAL NEURALGIA
     Dosage: DOSE: UNK
     Route: 048
     Dates: start: 20020416, end: 20020411
  6. FOSAMAX [Concomitant]
     Indication: OSTEOPOROSIS
     Dosage: DOSE: UNK
     Route: 048
     Dates: end: 20020407
  7. VITAMIN B-12 [Concomitant]
     Indication: PERNICIOUS ANAEMIA
     Dosage: DOSE: UNK

REACTIONS (3)
  - CHEST PAIN [None]
  - ELECTROCARDIOGRAM T WAVE PEAKED [None]
  - MYOCARDIAL INFARCTION [None]
